FAERS Safety Report 5619029-0 (Version None)
Quarter: 2008Q1

REPORT INFORMATION
  Report Type: 
  Country: None (occurrence: None)
  Receive Date: 20080207
  Receipt Date: 20080205
  Transmission Date: 20080703
  Serious: Yes (Death, Other)
  Sender: FDA-Public Use
  Company Number: UG-BOEHRINGER INGELHEIM GMBH, GERMANY-2008-BP-01750BP

PATIENT
  Sex: Male

DRUGS (1)
  1. VIRAMUNE [Suspect]

REACTIONS (1)
  - STEVENS-JOHNSON SYNDROME [None]
